FAERS Safety Report 4303286-7 (Version None)
Quarter: 2004Q1

REPORT INFORMATION
  Report Type: 
  Country: None (occurrence: None)
  Receive Date: 20040223
  Receipt Date: 20040216
  Transmission Date: 20041129
  Serious: Yes (Hospitalization, Other)
  Sender: FDA-Public Use
  Company Number: NO-JNJFOC-20040203212

PATIENT
  Age: 53 Year
  Sex: Female

DRUGS (7)
  1. REMICADE [Suspect]
     Indication: PSORIATIC ARTHROPATHY
     Dosage: 300 MG, INTRAVENOUS
     Route: 042
     Dates: start: 20030325, end: 20031217
  2. ROFECOXIB [Concomitant]
  3. METHOTREXATE [Concomitant]
  4. FOLIC ACID [Concomitant]
  5. LITHIUM CARBONATE [Concomitant]
  6. DAIVONEX (CALCIPOTRIOL) [Concomitant]
  7. DUROFERON (FERROUS SULFATE) [Concomitant]

REACTIONS (1)
  - BREAST CANCER STAGE II [None]
